FAERS Safety Report 4364570-4 (Version None)
Quarter: 2004Q2

REPORT INFORMATION
  Report Type: 
  Country: None (occurrence: None)
  Receive Date: 20040525
  Receipt Date: 20040517
  Transmission Date: 20050107
  Serious: Yes (Hospitalization, Other)
  Sender: FDA-Public Use
  Company Number: LB-MERCK-0405USA01154

PATIENT

DRUGS (4)
  1. LASIX [Concomitant]
     Route: 065
  2. GLUCOPHAGE [Concomitant]
     Route: 065
  3. COVERSYL [Concomitant]
     Route: 065
  4. ZOCOR [Suspect]
     Route: 048

REACTIONS (2)
  - HAEMATURIA [None]
  - PULMONARY OEDEMA [None]
